FAERS Safety Report 12134496 (Version 2)
Quarter: 2016Q1

REPORT INFORMATION
  Report Type: Spontaneous
  Country: US (occurrence: US)
  Receive Date: 20160301
  Receipt Date: 20160304
  Transmission Date: 20160526
  Serious: Yes (Other)
  Sender: FDA-Public Use
  Company Number: US-SHIRE-US201602101

PATIENT
  Sex: Male

DRUGS (1)
  1. PENTASA [Suspect]
     Active Substance: MESALAMINE
     Indication: CROHN^S DISEASE
     Dosage: UNK UNK, UNKNOWN (ONE DOSE TAKEN)
     Route: 048

REACTIONS (5)
  - Crohn^s disease [Unknown]
  - Pyrexia [Unknown]
  - Frequent bowel movements [Unknown]
  - Product use issue [Unknown]
  - Haematochezia [Unknown]
